FAERS Safety Report 9783409 (Version 1)
Quarter: 2013Q4

REPORT INFORMATION
  Report Type: Spontaneous
  Country: IT (occurrence: IT)
  Receive Date: 20131226
  Receipt Date: 20131226
  Transmission Date: 20140711
  Serious: Yes (Hospitalization)
  Sender: FDA-Public Use
  Company Number: IT-BRISTOL-MYERS SQUIBB COMPANY-19921113

PATIENT
  Age: 82 Year
  Sex: Female

DRUGS (5)
  1. COUMADIN TABS [Suspect]
     Indication: EMBOLISM
     Route: 048
     Dates: start: 20130401, end: 20131130
  2. CARVEDILOL [Concomitant]
     Indication: HYPERTENSION
     Dosage: TABS
     Route: 048
  3. QUETIAPINE [Concomitant]
     Indication: ABNORMAL BEHAVIOUR
     Dosage: TABS
     Route: 048
  4. SERENASE [Concomitant]
     Indication: ABNORMAL BEHAVIOUR
     Route: 048
  5. NORVASC [Concomitant]
     Indication: HYPERTENSION
     Dosage: TABS
     Route: 048

REACTIONS (4)
  - Haematoma [Recovering/Resolving]
  - Erythema [Recovering/Resolving]
  - Oedema peripheral [Recovering/Resolving]
  - Pain in extremity [Recovering/Resolving]
